FAERS Safety Report 7362244-9 (Version None)
Quarter: 2011Q1

REPORT INFORMATION
  Report Type: 
  Country: None (occurrence: None)
  Receive Date: 20110318
  Receipt Date: 20110221
  Transmission Date: 20110831
  Serious: No
  Sender: FDA-Public Use
  Company Number: US-B.I. PHARMACEUTICALS,INC./RIDGEFIELD-2011-BP-00636BP

PATIENT
  Age: 78 Year
  Sex: Female

DRUGS (8)
  1. ATENOLOL [Concomitant]
  2. ADVAIR DISKUS 100/50 [Concomitant]
  3. LEVOTHYOXINE [Concomitant]
  4. PAXIL [Concomitant]
     Indication: ANXIETY
  5. METFORMIN HCL [Concomitant]
     Indication: TYPE 2 DIABETES MELLITUS
  6. AVAPRO [Concomitant]
  7. CARTIA XT [Concomitant]
  8. PRADAXA [Suspect]
     Indication: ATRIAL FIBRILLATION
     Dosage: 300 MG
     Route: 048
     Dates: start: 20101215

REACTIONS (1)
  - INSOMNIA [None]
